FAERS Safety Report 4714749-4 (Version None)
Quarter: 2005Q3

REPORT INFORMATION
  Report Type: 
  Country: None (occurrence: None)
  Receive Date: 20050713
  Receipt Date: 20050708
  Transmission Date: 20060218
  Serious: Yes (Other)
  Sender: FDA-Public Use
  Company Number: S05-USA-02782-01

PATIENT
  Age: 62 Year
  Sex: Female
  Weight: 86.1834 kg

DRUGS (13)
  1. LEXAPRO [Suspect]
     Indication: DEPRESSION
     Dosage: 10 MG QD PO
     Route: 048
     Dates: start: 20041208, end: 20050102
  2. LEXAPRO [Suspect]
     Indication: DEPRESSION
     Dosage: 20 MG QD PO
     Route: 048
     Dates: start: 20050103
  3. LEXAPRO [Suspect]
     Indication: DEPRESSION
     Dates: end: 20050207
  4. PROZAC [Suspect]
     Indication: DEPRESSION
     Dosage: 80 MG QD PO
     Route: 048
  5. PROZAC [Suspect]
     Indication: DEPRESSION
     Dosage: 20 MG QD PO
     Route: 048
     Dates: start: 20050207
  6. PROZAC [Suspect]
     Indication: DEPRESSION
     Dosage: 40 MG QD PO
     Route: 048
     Dates: start: 20050424
  7. ABILIFY [Suspect]
     Indication: HALLUCINATION, AUDITORY
     Dosage: 30 MG QHS
     Dates: start: 20040823, end: 20050620
  8. DEPAKOTE [Concomitant]
  9. LISINOPRIL [Concomitant]
  10. DIOVAN [Concomitant]
  11. COREG [Concomitant]
  12. WELLBUTRIN [Concomitant]
  13. HYDROCODONE BITARTRATE + ACETAMINOPHEN [Concomitant]

REACTIONS (1)
  - PARKINSONISM [None]
